FAERS Safety Report 23294711 (Version 1)
Quarter: 2023Q4

REPORT INFORMATION
  Report Type: Spontaneous
  Country: US (occurrence: US)
  Receive Date: 20231213
  Receipt Date: 20231213
  Transmission Date: 20240109
  Serious: No
  Sender: FDA-Public Use
  Company Number: US-BIOMARINAP-US-2023-154334

PATIENT

DRUGS (1)
  1. VOXZOGO [Suspect]
     Active Substance: VOSORITIDE
     Indication: Osteochondrodysplasia
     Dosage: UNK
     Route: 058

REACTIONS (3)
  - Rash papular [Recovered/Resolved]
  - Mood swings [Recovering/Resolving]
  - Rash pruritic [Recovered/Resolved]

NARRATIVE: CASE EVENT DATE: 20231202
